FAERS Safety Report 8895781 (Version 1)
Quarter: 2012Q4

REPORT INFORMATION
  Report Type: 
  Country: DE (occurrence: JP)
  Receive Date: 20121108
  Receipt Date: 20121108
  Transmission Date: 20130627
  Serious: Yes (Death, Hospitalization)
  Sender: FDA-Public Use
  Company Number: JP-FRI-1000027328

PATIENT
  Age: 86 Year
  Sex: Female

DRUGS (6)
  1. MEMANTINE [Suspect]
     Indication: DEMENTIA ALZHEIMER^S TYPE
     Dosage: 5 mg
     Route: 048
     Dates: start: 20111226, end: 20120106
  2. MAGLAX [Suspect]
     Indication: CONSTIPATION
     Dosage: 1500 mg
     Route: 048
     Dates: start: 200811, end: 20120109
  3. ARICEPT [Concomitant]
     Dosage: 5 mg
     Route: 048
  4. YODEL-S [Concomitant]
     Dosage: 80 mg
     Route: 048
  5. MAO-BUSHI-SAISHIN-TO [Concomitant]
     Dosage: 7.5 g
     Route: 048
  6. ADALAT [Concomitant]
     Dosage: 10 mg
     Route: 048

REACTIONS (3)
  - Ileus paralytic [Fatal]
  - Altered state of consciousness [Fatal]
  - Hypermagnesaemia [Fatal]
